FAERS Safety Report 16175484 (Version 1)
Quarter: 2019Q2

REPORT INFORMATION
  Report Type: Spontaneous
  Country: US (occurrence: US)
  Receive Date: 20190409
  Receipt Date: 20190409
  Transmission Date: 20190711
  Serious: Yes (Life-Threatening, Hospitalization, Other)
  Sender: FDA-Public Use
  Company Number: US-MYLANLABS-2019M1033839

PATIENT
  Age: 13 Year
  Sex: Female

DRUGS (1)
  1. VERAPAMIL [Suspect]
     Active Substance: VERAPAMIL HYDROCHLORIDE
     Indication: PRODUCT USED FOR UNKNOWN INDICATION
     Dosage: FORMULATION: EXTENDED RELEASE RABLET
     Route: 048

REACTIONS (6)
  - Vasoplegia syndrome [Recovered/Resolved]
  - Myocardial stunning [Recovered/Resolved]
  - Arrhythmia [Recovered/Resolved]
  - Intentional overdose [Recovered/Resolved]
  - Atrioventricular block complete [Recovered/Resolved]
  - Electrolyte imbalance [Recovered/Resolved]
